FAERS Safety Report 9426462 (Version 1)
Quarter: 2013Q3

REPORT INFORMATION
  Report Type: Spontaneous
  Country: BE (occurrence: BE)
  Receive Date: 20130730
  Receipt Date: 20130730
  Transmission Date: 20140515
  Serious: Yes (Death, Other)
  Sender: FDA-Public Use
  Company Number: BE-JNJFOC-20130714608

PATIENT
  Age: 88 Year
  Sex: Male
  Weight: 103.86 kg

DRUGS (14)
  1. XARELTO [Suspect]
     Indication: PRODUCT USED FOR UNKNOWN INDICATION
     Route: 048
     Dates: start: 20130206, end: 20130410
  2. CARDIOASPIRINE [Suspect]
     Indication: CARDIOVASCULAR DISORDER
     Route: 065
  3. LANITOP [Suspect]
     Indication: ATRIAL FIBRILLATION
     Route: 065
     Dates: start: 20130311, end: 20130412
  4. ZOLPIDEM [Concomitant]
     Indication: SLEEP DISORDER
     Route: 048
  5. SERENOA REPENS [Concomitant]
     Indication: BENIGN PROSTATIC HYPERPLASIA
     Route: 048
  6. FERO-GRADUMET [Concomitant]
     Route: 048
  7. BURINEX [Concomitant]
     Indication: OEDEMA PERIPHERAL
     Route: 048
  8. COVERSYL [Concomitant]
     Indication: CARDIAC FAILURE
     Route: 048
  9. COVERSYL [Concomitant]
     Indication: HYPERTENSION
     Route: 048
  10. HYGROTON [Concomitant]
     Indication: CARDIAC FAILURE
     Route: 048
     Dates: start: 20130411, end: 20130412
  11. HYGROTON [Concomitant]
     Indication: OEDEMA PERIPHERAL
     Route: 048
     Dates: start: 20130411, end: 20130412
  12. EMCONCOR [Concomitant]
     Indication: CARDIAC FAILURE
     Route: 048
     Dates: start: 20130322, end: 20130412
  13. EMCONCOR [Concomitant]
     Indication: HYPERTENSION
     Route: 048
     Dates: start: 20130322, end: 20130412
  14. EMCONCOR [Concomitant]
     Indication: ATRIAL FIBRILLATION
     Route: 048
     Dates: start: 20130322, end: 20130412

REACTIONS (9)
  - Sudden death [Fatal]
  - Erysipelas [Fatal]
  - Cardiac failure [Unknown]
  - Escherichia sepsis [Unknown]
  - Haematoma [Unknown]
  - Incorrect dose administered [Unknown]
  - Pain in extremity [Unknown]
  - Dyspnoea [Unknown]
  - Arthralgia [Unknown]
